FAERS Safety Report 9630097 (Version 1)
Quarter: 2013Q4

REPORT INFORMATION
  Report Type: Spontaneous
  Country: US (occurrence: US)
  Receive Date: 20131017
  Receipt Date: 20131017
  Transmission Date: 20140711
  Serious: No
  Sender: FDA-Public Use
  Company Number: US-009507513-1309USA010458

PATIENT
  Sex: Female

DRUGS (2)
  1. IMPLANON [Suspect]
     Indication: CONTRACEPTION
     Dosage: 68 MG, ONE ROD EVERY THREE YEARS
     Route: 059
     Dates: end: 201306
  2. NEXPLANON [Concomitant]
     Dosage: UNK
     Dates: start: 20130930

REACTIONS (2)
  - Device breakage [Recovered/Resolved]
  - Implant site fibrosis [Unknown]
